FAERS Safety Report 22614762 (Version 1)
Quarter: 2023Q2

REPORT INFORMATION
  Report Type: Spontaneous
  Country: TR (occurrence: TR)
  Receive Date: 20230619
  Receipt Date: 20230619
  Transmission Date: 20230722
  Serious: No
  Sender: FDA-Public Use
  Company Number: TR-MLMSERVICE-20220221-3387871-1

PATIENT
  Age: 34 Year
  Sex: Female

DRUGS (3)
  1. PROPRANOLOL [Suspect]
     Active Substance: PROPRANOLOL HYDROCHLORIDE
     Indication: Tremor
     Dosage: 20 MG/ DAY
     Route: 065
  2. PROPRANOLOL [Suspect]
     Active Substance: PROPRANOLOL HYDROCHLORIDE
     Indication: Off label use
  3. FLUOXETINE [Concomitant]
     Active Substance: FLUOXETINE HYDROCHLORIDE
     Indication: Depression
     Dosage: 20 MG/ DAY
     Route: 065

REACTIONS (6)
  - Increased appetite [Unknown]
  - Weight increased [Unknown]
  - Hypoglycaemia [Unknown]
  - Overdose [Unknown]
  - Off label use [Unknown]
  - Product use issue [Unknown]
